FAERS Safety Report 10051443 (Version 4)
Quarter: 2014Q2

REPORT INFORMATION
  Report Type: Spontaneous
  Country: US (occurrence: US)
  Receive Date: 20140401
  Receipt Date: 20140523
  Transmission Date: 20141212
  Serious: Yes (Hospitalization)
  Sender: FDA-Public Use
  Company Number: US-B.I. PHARMACEUTICALS,INC./RIDGEFIELD-2012-BP-11009BP

PATIENT
  Age: 82 Year
  Sex: Male
  Weight: 70.3 kg

DRUGS (9)
  1. PRADAXA [Suspect]
     Indication: ATRIAL FIBRILLATION
     Dosage: 300 MG
     Route: 065
     Dates: start: 20110314, end: 20111123
  2. PRADAXA [Suspect]
     Indication: ANTICOAGULANT THERAPY
  3. LISINOPRIL [Concomitant]
     Dosage: 2.5 MG
     Route: 065
  4. SYNTHROID [Concomitant]
     Dosage: 75 MCG
     Route: 065
  5. ASPIRIN [Concomitant]
     Dosage: 81 MG
     Route: 065
  6. FUROSEMIDE [Concomitant]
     Dosage: 40 MG
     Route: 065
  7. COREG [Concomitant]
     Dosage: 25 MG
     Route: 065
  8. ZOCOR [Concomitant]
     Dosage: 20 MG
     Route: 065
  9. PROZAC [Concomitant]
     Dosage: 20 MG
     Route: 065

REACTIONS (3)
  - Upper gastrointestinal haemorrhage [Unknown]
  - Haemorrhagic anaemia [Unknown]
  - Coagulopathy [Unknown]
